FAERS Safety Report 10869225 (Version 2)
Quarter: 2015Q1

REPORT INFORMATION
  Report Type: Spontaneous
  Country: CA (occurrence: CA)
  Receive Date: 20150225
  Receipt Date: 20150313
  Transmission Date: 20150721
  Serious: Yes (Hospitalization, Disabling)
  Sender: FDA-Public Use
  Company Number: PHHY2015CA019510

PATIENT
  Age: 43 Year
  Sex: Female

DRUGS (9)
  1. AVAMYS [Concomitant]
     Active Substance: FLUTICASONE FUROATE
     Indication: PRODUCT USED FOR UNKNOWN INDICATION
     Route: 065
  2. OMNARIS [Concomitant]
     Active Substance: CICLESONIDE
     Indication: PRODUCT USED FOR UNKNOWN INDICATION
     Route: 065
  3. PATADAY [Concomitant]
     Active Substance: OLOPATADINE HYDROCHLORIDE
     Indication: PRODUCT USED FOR UNKNOWN INDICATION
     Route: 065
  4. CANDESARTAN SANDOZ [Suspect]
     Active Substance: CANDESARTAN
     Dosage: 20 MG, QD
     Route: 058
     Dates: start: 2014
  5. CETIRIZINE [Concomitant]
     Active Substance: CETIRIZINE HYDROCHLORIDE
     Indication: PRODUCT USED FOR UNKNOWN INDICATION
     Route: 065
     Dates: start: 20141106
  6. VENTOLIN [Concomitant]
     Active Substance: ALBUTEROL SULFATE
     Indication: PRODUCT USED FOR UNKNOWN INDICATION
     Route: 065
  7. ADVAIR HFA [Concomitant]
     Active Substance: FLUTICASONE PROPIONATE\SALMETEROL XINAFOATE
     Indication: PRODUCT USED FOR UNKNOWN INDICATION
     Route: 065
  8. CANDESARTAN SANDOZ [Suspect]
     Active Substance: CANDESARTAN
     Indication: HYPERTENSION
     Dosage: 10 MG, UNK
     Route: 058
     Dates: start: 2013
  9. PREDNISONE. [Concomitant]
     Active Substance: PREDNISONE
     Indication: PRODUCT USED FOR UNKNOWN INDICATION
     Route: 065

REACTIONS (5)
  - Wheezing [Not Recovered/Not Resolved]
  - Ocular discomfort [Unknown]
  - Sneezing [Unknown]
  - Asthma [Not Recovered/Not Resolved]
  - Hypersensitivity [Unknown]

NARRATIVE: CASE EVENT DATE: 201310
